FAERS Safety Report 8053407-8 (Version None)
Quarter: 2012Q1

REPORT INFORMATION
  Report Type: 
  Country: None (occurrence: None)
  Receive Date: 20120118
  Receipt Date: 20120117
  Transmission Date: 20120608
  Serious: Yes (Death, Hospitalization)
  Sender: FDA-Public Use
  Company Number: US-GLAXOSMITHKLINE-A0935416A

PATIENT
  Age: 22 Year
  Sex: Female
  Weight: 66.8 kg

DRUGS (11)
  1. FLORINEF [Concomitant]
  2. ORAL CONTRACEPTION [Concomitant]
  3. FLOVENT [Concomitant]
     Dates: start: 19990202, end: 20100113
  4. LAMICTAL [Concomitant]
  5. SEREVENT [Suspect]
     Dosage: 2PUFF TWICE PER DAY
     Route: 055
     Dates: start: 19990202
  6. ALBUTEROL [Concomitant]
  7. SEREVENT [Suspect]
     Indication: ASTHMA
     Dosage: 2PUFF TWICE PER DAY
     Route: 055
     Dates: start: 20000101
  8. KEPPRA [Concomitant]
  9. ADVAIR DISKUS 100/50 [Suspect]
     Indication: ASTHMA
     Dosage: 1PUFF TWICE PER DAY
     Route: 055
     Dates: start: 20100524
  10. ZYRTEC [Concomitant]
  11. NAPROXEN [Concomitant]

REACTIONS (1)
  - ASTHMA [None]
